FAERS Safety Report 21248499 (Version 1)
Quarter: 2022Q3

REPORT INFORMATION
  Report Type: Spontaneous
  Country: US (occurrence: None)
  Receive Date: 20220823
  Receipt Date: 20220823
  Transmission Date: 20221026
  Serious: No
  Sender: FDA-Public Use
  Company Number: None

PATIENT
  Age: 44 Year
  Sex: Female
  Weight: 60.75 kg

DRUGS (4)
  1. DEXTROAMPHET SACCHARAT, AMPHET ASPARTATE, DEXTROAMPHET SULFATE AND AMP [Suspect]
     Active Substance: AMPHETAMINE ASPARTATE\AMPHETAMINE SULFATE\DEXTROAMPHETAMINE SACCHARATE\DEXTROAMPHETAMINE SULFATE
     Indication: Attention deficit hyperactivity disorder
     Dosage: OTHER QUANTITY : 60 TABLET(S);?FREQUENCY : TWICE A DAY;?
     Route: 048
     Dates: start: 20220823, end: 20220823
  2. AMOXICILLIN [Concomitant]
     Active Substance: AMOXICILLIN
  3. VITAMINS [Concomitant]
     Active Substance: VITAMINS
  4. VITAMIN D [Concomitant]
     Active Substance: VITAMIN D NOS

REACTIONS (15)
  - Product substitution issue [None]
  - Dizziness [None]
  - Headache [None]
  - Derealisation [None]
  - Hallucination, auditory [None]
  - Feeling abnormal [None]
  - Heart rate increased [None]
  - Feeling hot [None]
  - Dry mouth [None]
  - Ear discomfort [None]
  - Hypoacusis [None]
  - Excessive eye blinking [None]
  - Dry eye [None]
  - Crying [None]
  - Muscle twitching [None]

NARRATIVE: CASE EVENT DATE: 20220823
